FAERS Safety Report 9798680 (Version 1)
Quarter: 2013Q4

REPORT INFORMATION
  Report Type: Spontaneous
  Country: FR (occurrence: None)
  Receive Date: 20131231
  Receipt Date: 20131231
  Transmission Date: 20140711
  Serious: Yes (Hospitalization)
  Sender: FDA-Public Use
  Company Number: AUR-APL-2013-10814

PATIENT
  Age: 84 Year
  Sex: Male

DRUGS (8)
  1. IRBESARTAN (IRBESARTAN) [Suspect]
     Indication: HYPERTENSION
     Dosage: 150 MG, 1 D
  2. TAHOR (ATORVASTATIN CALCIUM) [Suspect]
     Indication: DYSLIPIDAEMIA
     Dosage: 40 MG, 1 D
     Route: 048
     Dates: start: 201111, end: 20130824
  3. PANTOPRAZOLE (PANTOPRAZOLE) [Suspect]
     Indication: PRODUCT USED FOR UNKNOWN INDICATION
     Dosage: 20 MG, 1 D
     Route: 048
     Dates: end: 20131106
  4. FUROSEMIDE (FUROSEMIDE) [Suspect]
     Indication: PRODUCT USED FOR UNKNOWN INDICATION
     Dosage: (40 MG, 2 IN 1 D)
     Route: 048
  5. ALLOPURINOL (ALLOPURINOL) (ALLOPURINOL) [Suspect]
     Indication: GOUT
     Dosage: 100 MG, 1 D
     Route: 048
     Dates: end: 20131106
  6. NEBIVOLOL (NEBIVOLOL) [Concomitant]
  7. CLOPIDOGREL (CLOPIDOGREL) [Concomitant]
  8. ZOLPIDEM (ZOLPIDEM) [Concomitant]

REACTIONS (1)
  - Linear IgA disease [None]
